FAERS Safety Report 14074352 (Version 3)
Quarter: 2017Q4

REPORT INFORMATION
  Report Type: Report from Study
  Country: None (occurrence: US)
  Receive Date: 20171010
  Receipt Date: 20171122
  Transmission Date: 20180321
  Serious: Yes (Hospitalization)
  Sender: FDA-Public Use
  Company Number: US-ABBVIE-17P-163-2125479-00

PATIENT
  Age: 55 Year
  Sex: Female

DRUGS (27)
  1. VENETOCLAX. [Suspect]
     Active Substance: VENETOCLAX
     Indication: DIFFUSE LARGE B-CELL LYMPHOMA
     Dosage: DAYS 3-12 IN CYCLE 1, AND DAYS 1-10 WITH ALL SUBSEQUENT CYCLES EXCEPT DOSE LEVEL -1
     Route: 048
  2. DOXORUBICIN HYDROCHLORIDE(DOXORUBICIN HYDROCHLORIDE) [Concomitant]
     Dosage: CYCLE 3 DAY1
     Route: 042
     Dates: start: 20170609
  3. FLUOXETINE HYDROCHLORIDE. [Concomitant]
     Active Substance: FLUOXETINE HYDROCHLORIDE
     Indication: PRODUCT USED FOR UNKNOWN INDICATION
     Route: 048
  4. LEVOPHED [Concomitant]
     Active Substance: NOREPINEPHRINE BITARTRATE
     Indication: PRODUCT USED FOR UNKNOWN INDICATION
  5. RITUXIMAB (RITUXIMAB) [Concomitant]
     Active Substance: RITUXIMAB
     Dosage: CYCLE 3 DAY1
     Route: 042
     Dates: start: 20170609
  6. PREDNISONE(PREDNISONE) [Concomitant]
     Indication: DIFFUSE LARGE B-CELL LYMPHOMA
     Route: 048
  7. PREDNISONE(PREDNISONE) [Concomitant]
     Dosage: CYCLE 3 DAY1
     Dates: start: 20170609
  8. PREVIDENT [Concomitant]
     Active Substance: SODIUM FLUORIDE
     Indication: SENSITIVITY OF TEETH
     Dosage: 1,1%-5% PASTE
  9. CARDIZEM [Concomitant]
     Active Substance: DILTIAZEM HYDROCHLORIDE
     Indication: ATRIAL FIBRILLATION
  10. CYCLOPHOSPHAMIDE(CYCLOPHOSPHAMIDE) [Concomitant]
     Active Substance: CYCLOPHOSPHAMIDE
     Indication: DIFFUSE LARGE B-CELL LYMPHOMA
     Route: 042
  11. NEULASTA [Concomitant]
     Active Substance: PEGFILGRASTIM
     Indication: PRODUCT USED FOR UNKNOWN INDICATION
  12. RITUXIMAB (RITUXIMAB) [Concomitant]
     Active Substance: RITUXIMAB
     Indication: DIFFUSE LARGE B-CELL LYMPHOMA
     Dosage: INFUSION, SOLUTION. ON DAY 1 OF EACH CYCLE OF DA-EPOCH-R
     Route: 042
  13. ETOPOSIDE PHOSPHATE(ETOPOSIDE PHOSPHATE) [Concomitant]
     Indication: DIFFUSE LARGE B-CELL LYMPHOMA
     Route: 042
  14. ETOPOSIDE PHOSPHATE(ETOPOSIDE PHOSPHATE) [Concomitant]
     Dosage: CYCLE 3 DAY1
     Route: 042
     Dates: start: 20170609
  15. PROTONIX [Concomitant]
     Active Substance: PANTOPRAZOLE SODIUM
     Indication: PRODUCT USED FOR UNKNOWN INDICATION
     Route: 048
  16. CYCLOPHOSPHAMIDE(CYCLOPHOSPHAMIDE) [Concomitant]
     Active Substance: CYCLOPHOSPHAMIDE
     Dosage: CYCLE 3 DAY1
     Dates: start: 20170609
  17. COMPAZINE [Concomitant]
     Active Substance: PROCHLORPERAZINE MALEATE
     Indication: NAUSEA
  18. DOXORUBICIN HYDROCHLORIDE(DOXORUBICIN HYDROCHLORIDE) [Concomitant]
     Indication: DIFFUSE LARGE B-CELL LYMPHOMA
     Route: 042
  19. VINCRISTINE SULFATE(VINCRISTINE SULFATE) [Concomitant]
     Indication: DIFFUSE LARGE B-CELL LYMPHOMA
     Route: 042
  20. VINCRISTINE SULFATE(VINCRISTINE SULFATE) [Concomitant]
     Dosage: CYCLE 3 DAY1
     Route: 042
     Dates: start: 20170609
  21. ACETAMINOPHEN/OXYCODONE HYDROCHLORIDE [Concomitant]
     Active Substance: ACETAMINOPHEN\OXYCODONE HYDROCHLORIDE
     Indication: PAIN
     Dosage: 5MG-325MG
     Route: 048
  22. VENETOCLAX. [Suspect]
     Active Substance: VENETOCLAX
     Dosage: FOR 10 DAYS
     Route: 048
     Dates: start: 20170609
  23. CIPRO [Concomitant]
     Active Substance: CIPROFLOXACIN HYDROCHLORIDE
     Indication: PRODUCT USED FOR UNKNOWN INDICATION
  24. COMPAZINE [Concomitant]
     Active Substance: PROCHLORPERAZINE MALEATE
     Indication: VOMITING
     Route: 048
  25. VALTREX [Concomitant]
     Active Substance: VALACYCLOVIR HYDROCHLORIDE
     Indication: PROPHYLAXIS
     Route: 048
  26. BIOTIN [Concomitant]
     Active Substance: BIOTIN
     Indication: PRODUCT USED FOR UNKNOWN INDICATION
     Route: 048
  27. BACTRIM [Concomitant]
     Active Substance: SULFAMETHOXAZOLE\TRIMETHOPRIM
     Indication: PRODUCT USED FOR UNKNOWN INDICATION
     Dosage: 400-80MG
     Route: 048

REACTIONS (4)
  - Dehydration [Recovered/Resolved]
  - Pancytopenia [Recovered/Resolved]
  - Pneumonia [Recovered/Resolved]
  - Septic shock [Recovered/Resolved]

NARRATIVE: CASE EVENT DATE: 20170620
